FAERS Safety Report 9281353 (Version 1)
Quarter: 2013Q2

REPORT INFORMATION
  Report Type: Spontaneous
  Country: MT (occurrence: None)
  Receive Date: 20130502
  Receipt Date: 20130502
  Transmission Date: 20140414
  Serious: Yes (Hospitalization)
  Sender: FDA-Public Use
  Company Number: 1689813

PATIENT
  Age: 62 Year
  Sex: Female
  Weight: 40.82 kg

DRUGS (4)
  1. (GENTAMICIN SULFATE) [Suspect]
     Indication: ANTIBIOTIC PROPHYLAXIS
     Dates: start: 20130121
  2. (FLUCLOXACILLIN) [Concomitant]
  3. (AMLODIPINE) [Concomitant]
  4. (BENDROFLUAZIDE) [Concomitant]

REACTIONS (5)
  - Bradycardia [None]
  - Hyperhidrosis [None]
  - Hypertension [None]
  - Nausea [None]
  - Rash [None]
